FAERS Safety Report 11705640 (Version 4)
Quarter: 2017Q2

REPORT INFORMATION
  Report Type: Spontaneous
  Country: KR (occurrence: KR)
  Receive Date: 20151106
  Receipt Date: 20170407
  Transmission Date: 20170829
  Serious: Yes (Other)
  Sender: FDA-Public Use
  Company Number: KR-PFIZER INC-2015371316

PATIENT
  Age: 81 Year
  Sex: Female
  Weight: 57 kg

DRUGS (6)
  1. LINEZOLID. [Suspect]
     Active Substance: LINEZOLID
     Indication: STAPHYLOCOCCAL INFECTION
  2. MEMANTINE HYDROCHLORIDE. [Concomitant]
     Active Substance: MEMANTINE HYDROCHLORIDE
     Dosage: 10 MG, 2X/DAY
  3. LINEZOLID. [Suspect]
     Active Substance: LINEZOLID
     Indication: OTITIS EXTERNA
     Dosage: 600 MG, 2X/DAY
     Route: 042
  4. LINEZOLID. [Suspect]
     Active Substance: LINEZOLID
     Indication: OSTEOMYELITIS
  5. CILOSTAZOL. [Concomitant]
     Active Substance: CILOSTAZOL
     Dosage: 100 MG, 1X/DAY
  6. BUSPIRONE HYDROCHLORIDE. [Concomitant]
     Active Substance: BUSPIRONE HYDROCHLORIDE
     Dosage: 10 MG, 2X/DAY

REACTIONS (4)
  - Inappropriate antidiuretic hormone secretion [Recovered/Resolved]
  - Hyponatraemia [Recovered/Resolved]
  - Anaemia [Unknown]
  - Bone marrow failure [Unknown]
